FAERS Safety Report 4882497-6 (Version None)
Quarter: 2006Q1

REPORT INFORMATION
  Report Type: 
  Country: None (occurrence: None)
  Receive Date: 20060113
  Receipt Date: 20060103
  Transmission Date: 20060701
  Serious: Yes (Hospitalization)
  Sender: FDA-Public Use
  Company Number: 2005154829

PATIENT
  Sex: 0

DRUGS (1)
  1. CELEBREX [Suspect]
     Indication: ILL-DEFINED DISORDER

REACTIONS (2)
  - BLOOD PRESSURE DECREASED [None]
  - DRUG HYPERSENSITIVITY [None]
